FAERS Safety Report 14001224 (Version 6)
Quarter: 2018Q2

REPORT INFORMATION
  Report Type: Spontaneous
  Country: US (occurrence: US)
  Receive Date: 20170922
  Receipt Date: 20180427
  Transmission Date: 20180711
  Serious: Yes (Other)
  Sender: FDA-Public Use
  Company Number: US-JNJFOC-20170728964

PATIENT
  Age: 81 Year
  Sex: Female
  Weight: 57.61 kg

DRUGS (31)
  1. SPIRONOLACTONE. [Concomitant]
     Active Substance: SPIRONOLACTONE
     Indication: FLUID RETENTION
     Route: 048
  2. AMITRIPTYLINE [Concomitant]
     Active Substance: AMITRIPTYLINE
     Indication: NERVOUS SYSTEM DISORDER
     Route: 048
  3. BACLOFEN. [Concomitant]
     Active Substance: BACLOFEN
     Indication: BACK PAIN
     Route: 048
  4. GABAPENTIN. [Concomitant]
     Active Substance: GABAPENTIN
     Indication: DIABETIC NEUROPATHY
     Route: 048
  5. TRAMADOL. [Concomitant]
     Active Substance: TRAMADOL
     Indication: BACK PAIN
     Route: 048
  6. POTASSIUM CHLORIDE. [Concomitant]
     Active Substance: POTASSIUM CHLORIDE
     Indication: FLUID RETENTION
     Route: 065
  7. GLUCOSE [Concomitant]
     Active Substance: DEXTROSE
     Route: 065
  8. BENADRYL [Concomitant]
     Active Substance: DIPHENHYDRAMINE HYDROCHLORIDE
     Indication: HYPERSENSITIVITY
     Route: 065
  9. VITAMIN D3 CALCIUM [Concomitant]
     Active Substance: CALCIUM\CHOLECALCIFEROL
     Route: 065
  10. XARELTO [Suspect]
     Active Substance: RIVAROXABAN
     Indication: THROMBOSIS
     Route: 048
     Dates: start: 20170701, end: 20170721
  11. AMOXICILLIN AND CLAVULANATE POTASSIUM [Suspect]
     Active Substance: AMOXICILLIN\CLAVULANATE POTASSIUM
     Indication: ANTIBIOTIC THERAPY
     Route: 065
  12. BACLOFEN. [Concomitant]
     Active Substance: BACLOFEN
     Indication: BACK PAIN
     Route: 065
  13. XARELTO [Suspect]
     Active Substance: RIVAROXABAN
     Indication: DEEP VEIN THROMBOSIS
     Route: 048
     Dates: start: 20170701, end: 20170721
  14. XARELTO [Suspect]
     Active Substance: RIVAROXABAN
     Indication: DEEP VEIN THROMBOSIS
     Route: 048
     Dates: start: 20170722, end: 20180206
  15. BACLOFEN. [Concomitant]
     Active Substance: BACLOFEN
     Indication: INTERVERTEBRAL DISC DISORDER
     Route: 048
  16. KLOR-CON [Concomitant]
     Active Substance: POTASSIUM CHLORIDE
     Indication: FLUID REPLACEMENT
     Route: 048
  17. NEURONTIN [Concomitant]
     Active Substance: GABAPENTIN
     Indication: NEURALGIA
     Route: 065
  18. ELAVIL [Concomitant]
     Active Substance: AMITRIPTYLINE HYDROCHLORIDE
     Indication: NEURALGIA
     Route: 065
  19. LEVOTHYROXINE. [Concomitant]
     Active Substance: LEVOTHYROXINE
     Indication: THYROID DISORDER
     Route: 048
  20. TRAMADOL. [Concomitant]
     Active Substance: TRAMADOL
     Indication: PAIN IN EXTREMITY
     Route: 048
  21. BACLOFEN. [Concomitant]
     Active Substance: BACLOFEN
     Indication: BACK PAIN
     Route: 048
  22. LASIX [Concomitant]
     Active Substance: FUROSEMIDE
     Indication: FLUID RETENTION
     Route: 048
  23. CLONAZEPAM. [Concomitant]
     Active Substance: CLONAZEPAM
     Indication: RESTLESS LEGS SYNDROME
     Route: 048
  24. SPIRONOLACTONE. [Concomitant]
     Active Substance: SPIRONOLACTONE
     Indication: CARDIAC FAILURE
     Route: 048
  25. TRAMADOL. [Concomitant]
     Active Substance: TRAMADOL
     Indication: ARTHRALGIA
     Route: 048
  26. XARELTO [Suspect]
     Active Substance: RIVAROXABAN
     Indication: THROMBOSIS
     Route: 048
     Dates: start: 20170722, end: 20180206
  27. BACLOFEN. [Concomitant]
     Active Substance: BACLOFEN
     Indication: INTERVERTEBRAL DISC DISORDER
     Route: 048
  28. LEVOTHYROXINE. [Concomitant]
     Active Substance: LEVOTHYROXINE
     Indication: THYROID DISORDER
     Route: 048
  29. TRAMADOL. [Concomitant]
     Active Substance: TRAMADOL
     Indication: PAIN
     Route: 048
  30. MAGNESIUM [Concomitant]
     Active Substance: MAGNESIUM
     Route: 065
  31. ASCORBIC ACID. [Concomitant]
     Active Substance: ASCORBIC ACID
     Route: 065

REACTIONS (11)
  - Restlessness [Unknown]
  - Dyspnoea [Unknown]
  - Feeling of body temperature change [Unknown]
  - Venous haemorrhage [Unknown]
  - Peripheral swelling [Recovered/Resolved]
  - Dizziness [Recovering/Resolving]
  - Blood glucose increased [Recovering/Resolving]
  - Diarrhoea [Unknown]
  - Adverse event [Unknown]
  - Fatigue [Recovering/Resolving]
  - Muscle atrophy [Unknown]

NARRATIVE: CASE EVENT DATE: 2017
